FAERS Safety Report 5830507-1 (Version None)
Quarter: 2008Q3

REPORT INFORMATION
  Report Type: 
  Country: None (occurrence: None)
  Receive Date: 20080801
  Receipt Date: 20080722
  Transmission Date: 20090109
  Serious: Yes (Other)
  Sender: FDA-Public Use
  Company Number: BR-PFIZER INC-2008063785

PATIENT
  Sex: Male

DRUGS (5)
  1. CHANTIX [Suspect]
     Indication: TOBACCO ABUSE
     Route: 048
     Dates: start: 20080401, end: 20080401
  2. CRESTOR [Concomitant]
     Route: 065
  3. ATACAND [Concomitant]
     Route: 065
  4. SELOZOK [Concomitant]
     Route: 065
  5. PLAVIX [Concomitant]
     Route: 065

REACTIONS (2)
  - HYPERTHYROIDISM [None]
  - WEIGHT DECREASED [None]
